FAERS Safety Report 5346378-6 (Version None)
Quarter: 2007Q2

REPORT INFORMATION
  Report Type: 
  Country: None (occurrence: None)
  Receive Date: 20070605
  Receipt Date: 20070526
  Transmission Date: 20071010
  Serious: Yes (Other)
  Sender: FDA-Public Use
  Company Number: US-PFIZER INC-2007036504

PATIENT
  Age: 76 Year
  Sex: Female
  Weight: 65.909 kg

DRUGS (8)
  1. CELEBREX [Suspect]
     Indication: ARTHRALGIA
     Route: 048
  2. CELEBREX [Suspect]
     Indication: OSTEOARTHRITIS
  3. VIOXX [Concomitant]
  4. NORVASC [Concomitant]
     Dosage: DAILY DOSE:10MG
  5. HYDROCHLOROTHIAZIDE [Concomitant]
     Dosage: DAILY DOSE:25MG
  6. NEXIUM [Concomitant]
     Dosage: DAILY DOSE:40MG
  7. SINEMET [Concomitant]
     Dosage: TEXT:25/100
  8. LISINOPRIL [Concomitant]
     Dosage: DAILY DOSE:5MG

REACTIONS (4)
  - FATIGUE [None]
  - GAIT DISTURBANCE [None]
  - PARKINSON'S DISEASE [None]
  - TREMOR [None]
